FAERS Safety Report 14876922 (Version 1)
Quarter: 2018Q2

REPORT INFORMATION
  Report Type: Spontaneous
  Country: US (occurrence: US)
  Receive Date: 20180510
  Receipt Date: 20180510
  Transmission Date: 20180711
  Serious: Yes (Other)
  Sender: FDA-Public Use
  Company Number: US-EAGLE PHARMACEUTICALS, INC.-US-2018EAG000040

PATIENT

DRUGS (1)
  1. BENDEKA [Suspect]
     Active Substance: BENDAMUSTINE HYDROCHLORIDE
     Indication: PRODUCT USED FOR UNKNOWN INDICATION
     Dosage: UNK, (DAY 1 OVER 10 MINUTES, DAY 2 OVER 9 MINUTES)
     Route: 042
     Dates: start: 20180214

REACTIONS (1)
  - Infusion site cellulitis [Unknown]

NARRATIVE: CASE EVENT DATE: 2018
